FAERS Safety Report 23064028 (Version 1)
Quarter: 2023Q4

REPORT INFORMATION
  Report Type: Spontaneous
  Country: US (occurrence: US)
  Receive Date: 20231013
  Receipt Date: 20231013
  Transmission Date: 20240109
  Serious: No
  Sender: FDA-Public Use
  Company Number: US-BRISTOL-MYERS SQUIBB COMPANY-2023-145210

PATIENT
  Age: 69 Year
  Sex: Male

DRUGS (1)
  1. ONUREG [Suspect]
     Active Substance: AZACITIDINE
     Indication: Non-Hodgkin^s lymphoma
     Dosage: FREQUENCY: QD FOR 14 DAYS
     Route: 048

REACTIONS (1)
  - Off label use [Unknown]
